FAERS Safety Report 25480887 (Version 1)
Quarter: 2025Q2

REPORT INFORMATION
  Report Type: Report from Study
  Country: US (occurrence: US)
  Receive Date: 20250625
  Receipt Date: 20250625
  Transmission Date: 20250717
  Serious: Yes (Other)
  Sender: MALLINCKRODT
  Company Number: US-MALLINCKRODT-MNK202503732

PATIENT
  Sex: Female

DRUGS (2)
  1. CORTICOTROPIN [Suspect]
     Active Substance: CORTICOTROPIN
     Indication: Systemic lupus erythematosus
     Dates: start: 20240119
  2. BENLYSTA [Concomitant]
     Active Substance: BELIMUMAB

REACTIONS (5)
  - Rheumatoid arthritis [Unknown]
  - Blood glucose decreased [Unknown]
  - White blood cell count decreased [Unknown]
  - Sepsis [Unknown]
  - Osteoporosis [Unknown]
